FAERS Safety Report 11813386 (Version 7)
Quarter: 2018Q1

REPORT INFORMATION
  Report Type: Report from Study
  Country: US (occurrence: US)
  Receive Date: 20151209
  Receipt Date: 20180328
  Transmission Date: 20180508
  Serious: Yes (Hospitalization)
  Sender: FDA-Public Use
  Company Number: PHHY2015US101348

PATIENT
  Age: 50 Year
  Sex: Male
  Weight: 93.2 kg

DRUGS (7)
  1. CLONAZEPAM. [Concomitant]
     Active Substance: CLONAZEPAM
     Indication: MYOCLONUS
     Dosage: 0.5 MG, TID
     Route: 065
     Dates: start: 20140102
  2. GILENYA [Suspect]
     Active Substance: FINGOLIMOD HYDROCHLORIDE
     Indication: MULTIPLE SCLEROSIS
     Dosage: 0.5 MG, QD
     Route: 048
     Dates: start: 20150812
  3. CLONAZEPAM. [Concomitant]
     Active Substance: CLONAZEPAM
     Indication: ANXIETY
  4. AMBIEN [Concomitant]
     Active Substance: ZOLPIDEM TARTRATE
     Indication: PRODUCT USED FOR UNKNOWN INDICATION
     Dosage: 10 MG, PRN (AT BEDTIME)
     Route: 065
  5. BACLOFEN. [Concomitant]
     Active Substance: BACLOFEN
     Indication: MUSCLE SPASMS
     Dosage: 10 MG, TID
     Route: 065
     Dates: start: 201412
  6. GABAPENTIN. [Concomitant]
     Active Substance: GABAPENTIN
     Indication: PARAESTHESIA
     Dosage: 300 MG, TID
     Route: 065
     Dates: start: 201412
  7. ESCITALOPRAM [Concomitant]
     Active Substance: ESCITALOPRAM OXALATE
     Indication: DEPRESSION
     Dosage: 20 MG, QD
     Route: 065
     Dates: start: 20150203

REACTIONS (28)
  - Balance disorder [Unknown]
  - Asthenia [Unknown]
  - Central nervous system lesion [Unknown]
  - Aspartate aminotransferase increased [Unknown]
  - Feeling abnormal [Unknown]
  - Concomitant disease aggravated [Unknown]
  - Malaise [Unknown]
  - Tremor [Unknown]
  - Headache [Unknown]
  - Fear [Unknown]
  - Anxiety [Unknown]
  - Blood alkaline phosphatase increased [Unknown]
  - Alanine aminotransferase increased [Unknown]
  - Night sweats [Unknown]
  - Sinusitis [Unknown]
  - Memory impairment [Unknown]
  - Multiple sclerosis relapse [Unknown]
  - Insomnia [Unknown]
  - Aggression [Unknown]
  - Nervousness [Unknown]
  - Tearfulness [Unknown]
  - Pain in extremity [Unknown]
  - Fatigue [Unknown]
  - Paraesthesia [Unknown]
  - Hypoaesthesia [Unknown]
  - Restless legs syndrome [Not Recovered/Not Resolved]
  - Dizziness [Unknown]
  - Affect lability [Unknown]

NARRATIVE: CASE EVENT DATE: 20150817
